FAERS Safety Report 6635951-0 (Version None)
Quarter: 2010Q1

REPORT INFORMATION
  Report Type: 
  Country: None (occurrence: None)
  Receive Date: 20100316
  Receipt Date: 20100303
  Transmission Date: 20100710
  Serious: Yes (Hospitalization)
  Sender: FDA-Public Use
  Company Number: US-SANOFI-AVENTIS-2010SA012895

PATIENT
  Sex: Female

DRUGS (2)
  1. LOVENOX [Suspect]
     Route: 065
     Dates: start: 20091224
  2. ALL OTHER THERAPEUTIC PRODUCTS [Concomitant]

REACTIONS (7)
  - BLOOD ELECTROLYTES DECREASED [None]
  - DECREASED APPETITE [None]
  - HYPERSOMNIA [None]
  - INJECTION SITE HAEMATOMA [None]
  - RASH PRURITIC [None]
  - RENAL IMPAIRMENT [None]
  - URINE OUTPUT DECREASED [None]
